FAERS Safety Report 12346964 (Version 3)
Quarter: 2016Q2

REPORT INFORMATION
  Report Type: Spontaneous
  Country: FR (occurrence: FR)
  Receive Date: 20160509
  Receipt Date: 20160601
  Transmission Date: 20160815
  Serious: Yes (Disabling)
  Sender: FDA-Public Use
  Company Number: FR-009507513-1605FRA001527

PATIENT
  Age: 57 Year
  Sex: Female

DRUGS (2)
  1. ADROVANCE [Suspect]
     Active Substance: ALENDRONATE SODIUM\CHOLECALCIFEROL
     Indication: OSTEOPOROSIS
     Dosage: 1 DF, QW
     Route: 048
     Dates: start: 20160118, end: 20160223
  2. ACLASTA [Suspect]
     Active Substance: ZOLEDRONIC ACID
     Indication: OSTEOPOROSIS
     Dosage: 1 DF, ONCE A YEAR
     Route: 042
     Dates: start: 20131203, end: 20150103

REACTIONS (2)
  - Myalgia [Recovering/Resolving]
  - Muscle spasms [Recovering/Resolving]

NARRATIVE: CASE EVENT DATE: 20160125
